FAERS Safety Report 7898911-8 (Version None)
Quarter: 2011Q4

REPORT INFORMATION
  Report Type: 
  Country: None (occurrence: None)
  Receive Date: 20111107
  Receipt Date: 20111031
  Transmission Date: 20120403
  Serious: Yes (Death, Hospitalization, Other)
  Sender: FDA-Public Use
  Company Number: JP-CEPHALON-2011005708

PATIENT
  Sex: Male
  Weight: 40 kg

DRUGS (11)
  1. ALLOPURINOL [Concomitant]
     Dates: end: 20110120
  2. BROTIZOLAM [Concomitant]
     Dates: end: 20110119
  3. GRANISETRON HCL [Concomitant]
     Dates: start: 20101221, end: 20101222
  4. SULFAMETHOXAZOLE AND TRIMETHOPRIM [Concomitant]
     Dates: start: 20101228, end: 20110117
  5. ETIZOLAM [Concomitant]
     Dates: end: 20110119
  6. ENTECAVIR [Concomitant]
     Dates: start: 20101221
  7. FLUNITRAZEPAM [Concomitant]
     Dates: start: 20110107, end: 20110126
  8. BENDAMUSTINE HCL [Suspect]
     Indication: MANTLE CELL LYMPHOMA
     Route: 042
     Dates: start: 20101221, end: 20101222
  9. ACYCLOVIR [Concomitant]
     Dates: start: 20101228, end: 20110117
  10. UBIDECARENONE [Concomitant]
     Dates: end: 20110119
  11. VALGANCICLOVIR HYDROCHLORIDE (VALCYTE) [Concomitant]
     Dates: start: 20110103, end: 20110111

REACTIONS (7)
  - PLATELET COUNT DECREASED [None]
  - WHITE BLOOD CELL COUNT DECREASED [None]
  - LYMPHOCYTE COUNT DECREASED [None]
  - CARDIAC FAILURE ACUTE [None]
  - PNEUMOCYSTIS JIROVECI PNEUMONIA [None]
  - RENAL FAILURE ACUTE [None]
  - NEUTROPHIL COUNT DECREASED [None]
